FAERS Safety Report 8902052 (Version 1)
Quarter: 2012Q4

REPORT INFORMATION
  Report Type: 
  Country: AU (occurrence: AU)
  Receive Date: 20121112
  Receipt Date: 20121112
  Transmission Date: 20130627
  Serious: Yes (Other)
  Sender: FDA-Public Use
  Company Number: AU-PFIZER INC-2012279940

PATIENT
  Age: 28 Year
  Sex: Female

DRUGS (1)
  1. EFEXOR XR [Suspect]
     Indication: MAJOR DEPRESSIVE DISORDER NOS
     Dosage: 600 mg, 1x/day
     Route: 048

REACTIONS (3)
  - Overdose [Unknown]
  - Aggression [Unknown]
  - Anger [Unknown]
